FAERS Safety Report 19926112 (Version 4)
Quarter: 2021Q4

REPORT INFORMATION
  Report Type: Report from Study
  Country: MA (occurrence: None)
  Receive Date: 20211006
  Receipt Date: 20211130
  Transmission Date: 20220303
  Serious: Yes (Other)
  Sender: FDA-Public Use
  Company Number: MA-MERCK HEALTHCARE KGAA-9269785

PATIENT
  Age: 36 Year
  Sex: Female

DRUGS (2)
  1. REBIF [Suspect]
     Active Substance: INTERFERON BETA-1A
     Indication: Product used for unknown indication
     Dates: end: 20210920
  2. REBIF [Suspect]
     Active Substance: INTERFERON BETA-1A
     Dosage: RESUMPTION DATE 11-OCT-2021

REACTIONS (2)
  - Cholecystectomy [Recovered/Resolved]
  - Therapy interrupted [Recovered/Resolved]

NARRATIVE: CASE EVENT DATE: 20210920
